FAERS Safety Report 22243755 (Version 1)
Quarter: 2023Q2

REPORT INFORMATION
  Report Type: Spontaneous
  Country: US (occurrence: None)
  Receive Date: 20230420
  Receipt Date: 20230420
  Transmission Date: 20230721
  Serious: Yes (Hospitalization)
  Sender: FDA-Public Use
  Company Number: None

PATIENT
  Age: 67 Year
  Sex: Male
  Weight: 80.1 kg

DRUGS (11)
  1. LENALIDOMIDE [Suspect]
     Active Substance: LENALIDOMIDE
     Indication: Non-Hodgkin^s lymphoma
     Dosage: FREQUENCY : DAILY;?
     Route: 048
  2. ACETAMINOPHEN [Concomitant]
     Active Substance: ACETAMINOPHEN
  3. ASPIRIN [Concomitant]
     Active Substance: ASPIRIN
  4. AMLODIPINE [Concomitant]
     Active Substance: AMLODIPINE BESYLATE
  5. CLONIDINE [Concomitant]
     Active Substance: CLONIDINE
  6. HUMALOG [Concomitant]
     Active Substance: INSULIN LISPRO
  7. HYDROCORTISONE [Concomitant]
     Active Substance: HYDROCORTISONE
  8. LISINOPRIL [Concomitant]
     Active Substance: LISINOPRIL
  9. REVLIMID [Concomitant]
     Active Substance: LENALIDOMIDE
  10. TAMSULOSIN [Concomitant]
     Active Substance: TAMSULOSIN
  11. WELLBUTRIN SR [Concomitant]
     Active Substance: BUPROPION HYDROCHLORIDE

REACTIONS (5)
  - Agitation [None]
  - Mental status changes [None]
  - Pneumonia [None]
  - Underweight [None]
  - Asthenia [None]
